FAERS Safety Report 14512642 (Version 1)
Quarter: 2018Q1

REPORT INFORMATION
  Report Type: Spontaneous
  Country: US (occurrence: US)
  Receive Date: 20180209
  Receipt Date: 20180209
  Transmission Date: 20180509
  Serious: No
  Sender: FDA-Public Use
  Company Number: US-ALLERGAN-1712232US

PATIENT
  Age: 81 Year
  Sex: Female

DRUGS (7)
  1. PRIMIDONE. [Concomitant]
     Active Substance: PRIMIDONE
     Indication: SEIZURE
     Dosage: 250 MG, BID
     Route: 048
  2. BABY ASPIRIN [Concomitant]
     Active Substance: ASPIRIN
     Dosage: 81 MG, UNK
     Route: 048
  3. DILANTIN [Concomitant]
     Active Substance: PHENYTOIN
     Indication: SEIZURE
     Dosage: 100 MG, BID
     Route: 048
     Dates: start: 1948
  4. PROLIA [Concomitant]
     Active Substance: DENOSUMAB
     Dosage: 2 TIMES A YEAR
     Route: 030
  5. RESTASIS [Suspect]
     Active Substance: CYCLOSPORINE
     Indication: LACRIMATION DECREASED
     Dosage: 2 GTT, BID
     Route: 047
  6. SYNTHROID [Concomitant]
     Active Substance: LEVOTHYROXINE SODIUM
     Indication: HYPOTHYROIDISM
     Dosage: 125 MCG
     Route: 048
  7. HYDROXYCHLOROQUINE [Concomitant]
     Active Substance: HYDROXYCHLOROQUINE
     Indication: IMMUNE SYSTEM DISORDER
     Dosage: 200 MG, BI-WEEKLY
     Route: 048

REACTIONS (2)
  - Eye irritation [Not Recovered/Not Resolved]
  - Drug ineffective [Unknown]
